FAERS Safety Report 7845222-2 (Version None)
Quarter: 2011Q4

REPORT INFORMATION
  Report Type: 
  Country: None (occurrence: None)
  Receive Date: 20111025
  Receipt Date: 20111021
  Transmission Date: 20120403
  Serious: Yes (Life-Threatening, Hospitalization)
  Sender: FDA-Public Use
  Company Number: NL-ABBOTT-11P-114-0867051-00

PATIENT
  Sex: Male
  Weight: 75 kg

DRUGS (16)
  1. PREDNISOLONE [Concomitant]
     Indication: RHEUMATOID ARTHRITIS
     Route: 048
  2. ACETAMINOPHEN W/ CODEINE [Concomitant]
     Indication: PAIN
     Dosage: 500/10MG
     Route: 048
     Dates: start: 20090101
  3. OMEPRAZOL EC [Concomitant]
     Indication: GASTRIC DISORDER
     Route: 048
  4. HYDROXOCOBALAMIN [Concomitant]
     Indication: VITAMIN B12 DECREASED
     Route: 030
  5. LEUPROLIDE ACETATE [Suspect]
     Indication: PROSTATE CANCER
     Route: 058
     Dates: start: 20110411
  6. HYDROXYCHLOROQUINE SULFATE [Concomitant]
     Indication: RHEUMATOID ARTHRITIS
     Route: 048
     Dates: start: 20070101
  7. SULFASALAZINE [Concomitant]
     Indication: RHEUMATOID ARTHRITIS
     Route: 048
  8. TEMAZEPAM [Concomitant]
     Indication: INSOMNIA
     Route: 048
  9. LEUPROLIDE ACETATE [Suspect]
     Indication: PROSTATE CANCER
     Route: 058
     Dates: start: 20080709, end: 20110117
  10. FENTANYL BAND-AID [Concomitant]
     Indication: PAIN
     Dosage: 25UG/HOUR
     Route: 062
  11. OMEPRAZOL EC [Concomitant]
     Indication: PROPHYLAXIS
  12. ACETAMINOPHEN [Concomitant]
     Indication: PAIN
     Route: 048
  13. OXYCODONE HCL [Concomitant]
     Indication: PAIN
     Route: 048
  14. DICLOFENAC SODIUM [Concomitant]
     Indication: PAIN
     Route: 048
  15. ASPIRIN [Concomitant]
     Indication: ANEURYSM
     Route: 048
     Dates: start: 20100401
  16. DESMOPRESSINE [Concomitant]
     Indication: PROSTATE CANCER
     Route: 048
     Dates: start: 20100101

REACTIONS (4)
  - DEPRESSION [None]
  - ANEURYSM [None]
  - ANKLE OPERATION [None]
  - WOUND INFECTION BACTERIAL [None]
